FAERS Safety Report 9490641 (Version 1)
Quarter: 2013Q3

REPORT INFORMATION
  Report Type: Spontaneous
  Country: US (occurrence: None)
  Receive Date: 20130828
  Receipt Date: 20130828
  Transmission Date: 20140515
  Serious: Yes (Life-Threatening)
  Sender: FDA-Public Use
  Company Number: None

PATIENT
  Age: 71 Year
  Sex: Male
  Weight: 106.8 kg

DRUGS (15)
  1. PROTAMIN SULFATE [Suspect]
     Dosage: IV INFUSION
     Route: 042
     Dates: start: 20130808
  2. CEFAZOLIN [Concomitant]
  3. ALBUTEROL [Concomitant]
  4. FENTANYL [Concomitant]
  5. VERSED [Concomitant]
  6. ZEMURON [Concomitant]
  7. HEPARIN [Concomitant]
  8. LASIX [Concomitant]
  9. REGULAR INSULIN [Concomitant]
  10. PROTAMINE [Concomitant]
  11. SEVOFLURANE [Concomitant]
  12. OXYGEN [Concomitant]
  13. NORMAL SALINE [Concomitant]
  14. NEOSYNEPHRINE [Concomitant]
  15. LEVOPHED [Suspect]

REACTIONS (1)
  - Hypotension [None]
